FAERS Safety Report 8579879-8 (Version None)
Quarter: 2012Q3

REPORT INFORMATION
  Report Type: 
  Country: None (occurrence: None)
  Receive Date: 20120808
  Receipt Date: 20120730
  Transmission Date: 20120928
  Serious: No
  Sender: FDA-Public Use
  Company Number: US-ASTRAZENECA-2012SE53912

PATIENT
  Age: 61 Year
  Sex: Male
  Weight: 88.5 kg

DRUGS (8)
  1. QUETIAPINE FUMARATE [Suspect]
     Dosage: GENERIC, 50 MG
     Route: 048
     Dates: start: 20120401
  2. ATENOLOL [Suspect]
     Route: 065
  3. ROPINIROLE [Concomitant]
     Indication: RESTLESS LEGS SYNDROME
  4. LOSARTAN POTASSIUM [Concomitant]
  5. CLONAZEPAM [Concomitant]
  6. LIPITOR [Concomitant]
  7. QUETIAPINE FUMARATE [Suspect]
     Dosage: GENERIC, 100 MG
     Route: 048
  8. METFORMIN HCL [Concomitant]

REACTIONS (7)
  - AFFECTIVE DISORDER [None]
  - LETHARGY [None]
  - DRUG INEFFECTIVE [None]
  - LABILE BLOOD PRESSURE [None]
  - HYPERHIDROSIS [None]
  - FEELING ABNORMAL [None]
  - ASTHENIA [None]
